FAERS Safety Report 22622612 (Version 2)
Quarter: 2023Q2

REPORT INFORMATION
  Report Type: Report from Study
  Country: CO (occurrence: CO)
  Receive Date: 20230621
  Receipt Date: 20230630
  Transmission Date: 20230721
  Serious: Yes (Other)
  Sender: FDA-Public Use
  Company Number: CO-APIL-2315653US

PATIENT
  Age: 25 Year
  Sex: Male
  Weight: 96 kg

DRUGS (2)
  1. BOTOX [Suspect]
     Active Substance: ONABOTULINUMTOXINA
     Indication: Migraine
     Dosage: TIME INTERVAL: AS NECESSARY
     Route: 030
     Dates: start: 20220809, end: 20230124
  2. BOTOX [Suspect]
     Active Substance: ONABOTULINUMTOXINA
     Indication: Migraine
     Dosage: TIME INTERVAL: AS NECESSARY: FORM STRENGTH: 200 UNIT
     Route: 030
     Dates: start: 20220809, end: 20220809

REACTIONS (7)
  - Pituitary tumour [Not Recovered/Not Resolved]
  - Hypoacusis [Not Recovered/Not Resolved]
  - Visual impairment [Not Recovered/Not Resolved]
  - Condition aggravated [Not Recovered/Not Resolved]
  - Nervous system disorder [Not Recovered/Not Resolved]
  - Migraine [Not Recovered/Not Resolved]
  - Drug effect less than expected [Not Recovered/Not Resolved]

NARRATIVE: CASE EVENT DATE: 20230401
